FAERS Safety Report 4863497-9 (Version None)
Quarter: 2005Q4

REPORT INFORMATION
  Report Type: 
  Country: None (occurrence: None)
  Receive Date: 20051222
  Receipt Date: 20050309
  Transmission Date: 20060501
  Serious: No
  Sender: FDA-Public Use
  Company Number: 2005032546

PATIENT
  Age: 82 Year
  Sex: Female

DRUGS (2)
  1. FLONASE [Suspect]
     Route: 045
  2. NASALCROM [Suspect]
     Route: 045

REACTIONS (1)
  - EPISTAXIS [None]
